FAERS Safety Report 20404633 (Version 1)
Quarter: 2022Q1

REPORT INFORMATION
  Report Type: Spontaneous
  Country: US (occurrence: None)
  Receive Date: 20220128
  Receipt Date: 20220128
  Transmission Date: 20220423
  Serious: No
  Sender: FDA-Public Use
  Company Number: None

PATIENT
  Age: 53 Year
  Sex: Male

DRUGS (1)
  1. TREMFYA [Suspect]
     Active Substance: GUSELKUMAB
     Indication: Psoriatic arthropathy
     Dosage: FREQUENCY : AS DIRECTED;?INJECT 100MG SUBCUTANEOUSLY AT WEEK O AND WEEK  4 AS?DIRECTED.?
     Route: 058
     Dates: start: 202104

REACTIONS (1)
  - COVID-19 [None]
